FAERS Safety Report 8021024-1 (Version None)
Quarter: 2011Q4

REPORT INFORMATION
  Report Type: 
  Country: None (occurrence: None)
  Receive Date: 20111228
  Receipt Date: 20111215
  Transmission Date: 20120403
  Serious: Yes (Hospitalization)
  Sender: FDA-Public Use
  Company Number: 2011MA017823

PATIENT
  Age: 79 Year
  Sex: Female

DRUGS (4)
  1. DICLOFENAC SODIUM [Suspect]
     Indication: OSTEOARTHRITIS
     Dosage: 75 MG;QD;PO
     Route: 048
     Dates: start: 19991125
  2. LISINOPRIL [Concomitant]
  3. SIMVADOR [Concomitant]
  4. BENDROFLUMETHIAZIDE [Concomitant]

REACTIONS (1)
  - TRANSIENT ISCHAEMIC ATTACK [None]
